FAERS Safety Report 5758628-2 (Version None)
Quarter: 2008Q2

REPORT INFORMATION
  Report Type: 
  Country: None (occurrence: None)
  Receive Date: 20080530
  Receipt Date: 20080513
  Transmission Date: 20081010
  Serious: Yes (Other)
  Sender: FDA-Public Use
  Company Number: WAES 0805PRT00008

PATIENT
  Age: 38 Year
  Sex: Male

DRUGS (3)
  1. TAB RALTEGRAVIR POTASSIUM [Suspect]
     Indication: HIV INFECTION
     Dosage: 400 MG/BID PO
     Route: 048
     Dates: start: 20080128, end: 20080509
  2. EMTRICITABINE (+) TENOFOVIR DISOPROXIL F [Concomitant]
  3. ZIDOVUDINE [Concomitant]

REACTIONS (2)
  - HALLUCINATION, AUDITORY [None]
  - PARANOID PERSONALITY DISORDER [None]
